FAERS Safety Report 8305163-3 (Version None)
Quarter: 2012Q2

REPORT INFORMATION
  Report Type: 
  Country: None (occurrence: None)
  Receive Date: 20120418
  Receipt Date: 20120305
  Transmission Date: 20120825
  Serious: Yes (Hospitalization, Other)
  Sender: FDA-Public Use
  Company Number: JPNSP2011054761

PATIENT
  Age: 52 Year
  Sex: Female
  Weight: 57 kg

DRUGS (6)
  1. GASMOTIN (MOSAPRIDE CITRATE) [Concomitant]
  2. LIVALO [Concomitant]
  3. JUVELA NITCOTINATE (TOCOPHERYL NICOTINATE) [Concomitant]
  4. INDOMETHACIN [Concomitant]
  5. ENBREL (ETANERCEPT) SOLUTION FOR INJECTION IN PRE-FILLED SYRINGE [Suspect]
     Indication: RHEUMATOID ARTHRITIS
     Dosage: 25 MG, 2X/WEEK, SUBCUTANEOUS
     Route: 058
     Dates: start: 20060525, end: 20111020
  6. RHEUMATREX [Suspect]
     Indication: RHEUMATOID ARTHRITIS
     Dosage: 2. 6 MG, WEEKIY,ORAL
     Route: 048

REACTIONS (2)
  - OVARIAN CANCER [None]
  - METASTASES TO LUNG [None]
